FAERS Safety Report 12603044 (Version 1)
Quarter: 2016Q3

REPORT INFORMATION
  Report Type: Spontaneous
  Country: FR (occurrence: FR)
  Receive Date: 20160728
  Receipt Date: 20160728
  Transmission Date: 20161109
  Serious: Yes (Hospitalization)
  Sender: FDA-Public Use
  Company Number: FR-PFIZER INC-2016355760

PATIENT
  Age: 80 Year
  Sex: Female

DRUGS (7)
  1. AMLOR [Suspect]
     Active Substance: AMLODIPINE BESYLATE
     Dosage: UNK
     Route: 048
     Dates: start: 201605, end: 20160708
  2. BRILIQUE [Suspect]
     Active Substance: TICAGRELOR
     Dosage: UNK
     Route: 048
     Dates: start: 201605, end: 20160708
  3. VALSARTAN. [Suspect]
     Active Substance: VALSARTAN
     Dosage: UNK
     Route: 048
     Dates: start: 201605, end: 20160708
  4. KARDEGIC [Suspect]
     Active Substance: ASPIRIN LYSINE
     Dosage: UNK
     Route: 048
     Dates: start: 201605, end: 20160708
  5. BISOPROLOL FUMARATE. [Suspect]
     Active Substance: BISOPROLOL FUMARATE
     Dosage: UNK
     Route: 048
     Dates: start: 201605, end: 20160708
  6. ATORVASTATIN CALCIUM. [Suspect]
     Active Substance: ATORVASTATIN CALCIUM
     Dosage: UNK
     Route: 048
     Dates: start: 201605, end: 20160708
  7. EUPRESSYL /00631801/ [Suspect]
     Active Substance: URAPIDIL
     Dosage: UNK
     Route: 048
     Dates: start: 201605, end: 20160708

REACTIONS (1)
  - Drug reaction with eosinophilia and systemic symptoms [Not Recovered/Not Resolved]

NARRATIVE: CASE EVENT DATE: 201606
